FAERS Safety Report 11838737 (Version 1)
Quarter: 2015Q4

REPORT INFORMATION
  Report Type: Spontaneous
  Country: US (occurrence: US)
  Receive Date: 20151215
  Receipt Date: 20151215
  Transmission Date: 20160305
  Serious: Yes (Other)
  Sender: FDA-Public Use
  Company Number: US-SA-2015SA102862

PATIENT

DRUGS (1)
  1. FERRLECIT [Suspect]
     Active Substance: SODIUM FERRIC GLUCONATE COMPLEX
     Route: 065

REACTIONS (5)
  - Anaphylactic reaction [Unknown]
  - Paraesthesia [Unknown]
  - Erythema [Unknown]
  - Flushing [Unknown]
  - Feeling hot [Unknown]
